FAERS Safety Report 14670617 (Version 1)
Quarter: 2018Q1

REPORT INFORMATION
  Report Type: Spontaneous
  Country: ES (occurrence: ES)
  Receive Date: 20180322
  Receipt Date: 20180322
  Transmission Date: 20180509
  Serious: Yes (Other)
  Sender: FDA-Public Use
  Company Number: ES-009507513-1802ESP012948

PATIENT
  Age: 38 Year
  Sex: Female
  Weight: 65 kg

DRUGS (1)
  1. IMPLANON [Suspect]
     Active Substance: ETONOGESTREL
     Indication: CONTRACEPTION
     Dosage: 1 DF, UNK, IN THE INNER PART OF RIGHT ARM
     Route: 059
     Dates: start: 20171128

REACTIONS (4)
  - Sensation of foreign body [Unknown]
  - Pain in extremity [Recovering/Resolving]
  - Discomfort [Unknown]
  - Breast feeding [Unknown]

NARRATIVE: CASE EVENT DATE: 20171128
